FAERS Safety Report 10300098 (Version 1)
Quarter: 2014Q3

REPORT INFORMATION
  Report Type: Spontaneous
  Country: JP (occurrence: JP)
  Receive Date: 20140711
  Receipt Date: 20140711
  Transmission Date: 20150326
  Serious: Yes (Other)
  Sender: FDA-Public Use
  Company Number: PHHY2011JP120456

PATIENT
  Age: 73 Year
  Sex: Male

DRUGS (4)
  1. CDDP [Concomitant]
     Active Substance: CISPLATIN
     Dosage: 20 MG/M2, DAY 1-5
  2. SANDOSTATIN LAR DEPOT [Suspect]
     Active Substance: OCTREOTIDE ACETATE
     Indication: PROSTATE CANCER
     Dates: start: 2011
  3. VP-16 [Concomitant]
     Active Substance: ETOPOSIDE
     Dosage: 100 MG/M2, DAY 1-5
  4. SANDOSTATIN LAR DEPOT [Suspect]
     Active Substance: OCTREOTIDE ACETATE
     Indication: OFF LABEL USE

REACTIONS (7)
  - Urinary retention [Unknown]
  - Fatigue [Unknown]
  - Herpes zoster [Unknown]
  - Neutropenia [Unknown]
  - Malignant neoplasm progression [Unknown]
  - Tumour marker increased [Unknown]
  - Cancer pain [Unknown]

NARRATIVE: CASE EVENT DATE: 2011
